FAERS Safety Report 7221509-1 (Version None)
Quarter: 2011Q1

REPORT INFORMATION
  Report Type: 
  Country: None (occurrence: None)
  Receive Date: 20110112
  Receipt Date: 20110104
  Transmission Date: 20110831
  Serious: Yes (Hospitalization, Other)
  Sender: FDA-Public Use
  Company Number: PHHY2009CA24126

PATIENT
  Sex: Male

DRUGS (6)
  1. DIGOXIN [Concomitant]
  2. VITALUX [Concomitant]
  3. SANDOSTATIN LAR [Suspect]
     Dosage: 50 MG, EVERY 4 WEEKS
     Route: 030
  4. SANDOSTATIN LAR [Suspect]
     Dosage: 40 MG, EVERY 4 WEEKS
     Route: 030
  5. SANDOSTATIN LAR [Suspect]
     Indication: CARCINOID TUMOUR
     Dosage: 30 MG, QMO
     Route: 030
     Dates: start: 20050505
  6. METOPROLOL [Suspect]

REACTIONS (14)
  - HYPERHIDROSIS [None]
  - BRADYCARDIA [None]
  - DIZZINESS [None]
  - SKIN WARM [None]
  - VOMITING [None]
  - NAUSEA [None]
  - BLOOD PRESSURE SYSTOLIC INCREASED [None]
  - DIARRHOEA [None]
  - PALLOR [None]
  - FLUSHING [None]
  - ARTHRALGIA [None]
  - MALAISE [None]
  - TENDERNESS [None]
  - FATIGUE [None]
